FAERS Safety Report 5410296-5 (Version None)
Quarter: 2007Q3

REPORT INFORMATION
  Report Type: 
  Country: None (occurrence: None)
  Receive Date: 20070808
  Receipt Date: 20070730
  Transmission Date: 20080115
  Serious: No
  Sender: FDA-Public Use
  Company Number: US020307

PATIENT
  Age: 45 Year
  Sex: Female
  Weight: 90.7194 kg

DRUGS (2)
  1. FENTORA [Suspect]
     Indication: PAIN
     Dosage: 200 UG EVERY 8 HOURS BUCCAL
     Route: 002
     Dates: start: 20070617
  2. DILAUDID [Concomitant]

REACTIONS (4)
  - ACCIDENTAL EXPOSURE [None]
  - CONTUSION [None]
  - GINGIVAL INJURY [None]
  - WRONG TECHNIQUE IN DRUG USAGE PROCESS [None]
